FAERS Safety Report 4505856-X (Version None)
Quarter: 2004Q4

REPORT INFORMATION
  Report Type: 
  Country: None (occurrence: None)
  Receive Date: 20041018
  Receipt Date: 20040915
  Transmission Date: 20050328
  Serious: No
  Sender: FDA-Public Use
  Company Number: 208717

PATIENT
  Age: 51 Year
  Sex: Female
  Weight: 88 kg

DRUGS (8)
  1. XOLAIR [Suspect]
     Indication: ASTHMA
     Dosage: 150 MG,Q4W, SUBCUTANEOUS
     Route: 058
     Dates: start: 20040413
  2. FLOVENT [Concomitant]
  3. ASTELIN NASAL SPRAY (AZELASTINE HYDROCHLORIDE) [Concomitant]
  4. ACTIFIED (PSEUDOEPHEDRINE HYDROCHLORIDE, TRIPROLIDINE HYDROCHLORIDE) [Concomitant]
  5. ALBUTEROL (ALBUTEROL SULFATE, ALBUTEROL) [Concomitant]
  6. SYNTHROID [Concomitant]
  7. RHINOCORT [Concomitant]
  8. ADVAIR (FLUTICASONE PROPIONATE, SALMETEROL XINAFOATE) [Concomitant]

REACTIONS (1)
  - CONTUSION [None]
